FAERS Safety Report 14458613 (Version 1)
Quarter: 2018Q1

REPORT INFORMATION
  Report Type: Spontaneous
  Country: US (occurrence: US)
  Receive Date: 20180130
  Receipt Date: 20180130
  Transmission Date: 20180509
  Serious: No
  Sender: FDA-Public Use
  Company Number: US-BAUSCH-BL-2017-013555

PATIENT
  Sex: Female

DRUGS (1)
  1. ZYLET [Suspect]
     Active Substance: LOTEPREDNOL ETABONATE\TOBRAMYCIN
     Indication: EYE INFECTION
     Route: 047
     Dates: start: 20170407, end: 20170413

REACTIONS (7)
  - Pruritus [Unknown]
  - Arthralgia [Unknown]
  - Hyperhidrosis [Unknown]
  - Hypersensitivity [Recovered/Resolved]
  - Drug ineffective [Unknown]
  - Pyrexia [Unknown]
  - Incision site inflammation [Unknown]

NARRATIVE: CASE EVENT DATE: 201704
